FAERS Safety Report 13810064 (Version 5)
Quarter: 2018Q1

REPORT INFORMATION
  Report Type: Spontaneous
  Country: DE (occurrence: DE)
  Receive Date: 20170728
  Receipt Date: 20180328
  Transmission Date: 20180508
  Serious: Yes (Death)
  Sender: FDA-Public Use
  Company Number: DE-JNJFOC-20170720347

PATIENT
  Age: 64 Year
  Sex: Female
  Weight: 51 kg

DRUGS (3)
  1. REVLIMID [Suspect]
     Active Substance: LENALIDOMIDE
     Indication: PLASMA CELL MYELOMA
     Route: 048
     Dates: start: 20170529, end: 20170612
  2. DEXAMETHASONE. [Suspect]
     Active Substance: DEXAMETHASONE
     Indication: PLASMA CELL MYELOMA
     Dosage: 2.8571MG??DAILY DOSE: 40 MG MILIGRAMS EVERY WEEK.
     Route: 048
     Dates: start: 20170529, end: 20170612
  3. DARZALEX [Suspect]
     Active Substance: DARATUMUMAB
     Indication: PLASMA CELL MYELOMA
     Route: 042
     Dates: start: 20161212, end: 20170529

REACTIONS (6)
  - Multiple organ dysfunction syndrome [Fatal]
  - Acute hepatitis B [Fatal]
  - Acute hepatic failure [Fatal]
  - Pneumocystis jirovecii pneumonia [Fatal]
  - Neutropenia [Fatal]
  - Hepatitis B reactivation [Fatal]

NARRATIVE: CASE EVENT DATE: 20170611
